FAERS Safety Report 16796846 (Version 4)
Quarter: 2020Q4

REPORT INFORMATION
  Report Type: Report from Study
  Country: US (occurrence: US)
  Receive Date: 20190911
  Receipt Date: 20201217
  Transmission Date: 20210113
  Serious: Yes (Death, Life-Threatening, Other)
  Sender: FDA-Public Use
  Company Number: PHEH2019US036863

PATIENT
  Age: 22 Year
  Sex: Male
  Weight: 81.9 kg

DRUGS (3)
  1. CYCLOPHOSPHAMIDE. [Concomitant]
     Active Substance: CYCLOPHOSPHAMIDE
     Indication: CHEMOTHERAPY
     Route: 065
  2. KYMRIAH [Suspect]
     Active Substance: TISAGENLECLEUCEL
     Indication: ACUTE LYMPHOCYTIC LEUKAEMIA
     Dosage: UNK
     Route: 065
     Dates: start: 20190627
  3. KYMRIAH [Suspect]
     Active Substance: TISAGENLECLEUCEL
     Indication: B-CELL TYPE ACUTE LEUKAEMIA

REACTIONS (15)
  - Infection [Fatal]
  - Respiratory failure [Unknown]
  - Organ failure [Unknown]
  - Hypogammaglobulinaemia [Unknown]
  - Sinusitis [Unknown]
  - Platelet count decreased [Recovered/Resolved]
  - Pyrexia [Unknown]
  - Fungal infection [Unknown]
  - Human metapneumovirus test positive [Recovered/Resolved]
  - Rhinovirus infection [Unknown]
  - Haemoglobin decreased [Unknown]
  - Neoplasm [Unknown]
  - Cytokine release syndrome [Recovered/Resolved]
  - Treatment failure [Unknown]
  - Haematocrit decreased [Unknown]

NARRATIVE: CASE EVENT DATE: 20190711
